FAERS Safety Report 20823847 (Version 5)
Quarter: 2023Q1

REPORT INFORMATION
  Report Type: Report from Study
  Country: US (occurrence: US)
  Receive Date: 20220513
  Receipt Date: 20230215
  Transmission Date: 20230417
  Serious: Yes (Hospitalization)
  Sender: FDA-Public Use
  Company Number: US-NOVARTISPH-NVSC2022US072896

PATIENT
  Age: 73 Year
  Sex: Male
  Weight: 65 kg

DRUGS (7)
  1. BATOPROTAFIB [Suspect]
     Active Substance: BATOPROTAFIB
     Indication: Colorectal cancer
     Dosage: 40 MG, QD
     Route: 048
     Dates: start: 20220209, end: 20220325
  2. BATOPROTAFIB [Suspect]
     Active Substance: BATOPROTAFIB
     Dosage: 150 MG, Q12H
     Route: 048
     Dates: start: 20220329
  3. DABRAFENIB [Suspect]
     Active Substance: DABRAFENIB
     Indication: Colorectal cancer
     Dosage: 150 MG, QD
     Route: 048
     Dates: start: 20220209, end: 20220325
  4. DABRAFENIB [Suspect]
     Active Substance: DABRAFENIB
     Dosage: UNK
     Route: 048
  5. RINETERKIB [Suspect]
     Active Substance: RINETERKIB
     Indication: Colorectal cancer
     Dosage: 100 MG, QD
     Route: 048
     Dates: start: 20220209, end: 20220325
  6. RINETERKIB [Suspect]
     Active Substance: RINETERKIB
     Dosage: 100 MG, QD
     Route: 048
     Dates: start: 20220329
  7. ASPIRIN [Concomitant]
     Active Substance: ASPIRIN
     Indication: General physical condition
     Dosage: UNK
     Route: 065

REACTIONS (1)
  - Diarrhoea [Recovered/Resolved]

NARRATIVE: CASE EVENT DATE: 20220326
